FAERS Safety Report 13113422 (Version 5)
Quarter: 2020Q3

REPORT INFORMATION
  Report Type: Spontaneous
  Country: US (occurrence: US)
  Receive Date: 20170113
  Receipt Date: 20200708
  Transmission Date: 20201102
  Serious: Yes (Other)
  Sender: FDA-Public Use
  Company Number: US-PFIZER INC-2017013901

PATIENT
  Age: 68 Year
  Sex: Female

DRUGS (1)
  1. LYRICA [Suspect]
     Active Substance: PREGABALIN
     Dosage: 300 MG, 2X/DAY

REACTIONS (5)
  - Illness [Unknown]
  - Infection [Unknown]
  - Pyrexia [Unknown]
  - Femur fracture [Unknown]
  - Cataract [Unknown]
